FAERS Safety Report 9365981 (Version 1)
Quarter: 2013Q2

REPORT INFORMATION
  Report Type: Report from Study
  Country: US (occurrence: US)
  Receive Date: 20130625
  Receipt Date: 20130625
  Transmission Date: 20140414
  Serious: Yes (Other)
  Sender: FDA-Public Use
  Company Number: US-SANOFI-AVENTIS-2013SA062698

PATIENT
  Age: 62 Year
  Sex: Male

DRUGS (10)
  1. JEVTANA [Suspect]
     Indication: PROSTATE CANCER
     Route: 041
     Dates: start: 20130530, end: 20130530
  2. MITOXANTRONE [Suspect]
     Indication: PROSTATE CANCER
     Route: 041
     Dates: start: 20130530, end: 20130530
  3. AMLODIPINE [Concomitant]
     Dosage: 5-10 MG DAILY
     Dates: start: 201202
  4. BUPROPION [Concomitant]
     Dates: start: 2009
  5. CALCIUM [Concomitant]
     Dates: start: 20130107
  6. VITAMIN D [Concomitant]
     Dates: start: 20130107
  7. XGEVA [Concomitant]
     Dosage: Q 6 WEEKS
     Dates: start: 20121101
  8. LUPRON [Concomitant]
     Dosage: Q3MONTHS
     Dates: start: 20120119
  9. NEULASTA [Concomitant]
     Dosage: EVERY 21 DAYS
     Route: 058
     Dates: start: 20121206
  10. IMODIUM [Concomitant]
     Dates: start: 20121208

REACTIONS (1)
  - Convulsion [Recovering/Resolving]
